FAERS Safety Report 16883962 (Version 2)
Quarter: 2019Q4

REPORT INFORMATION
  Report Type: Spontaneous
  Country: US (occurrence: US)
  Receive Date: 20191004
  Receipt Date: 20191010
  Transmission Date: 20200122
  Serious: No
  Sender: FDA-Public Use
  Company Number: US-HORIZON-ACT-0261-2019

PATIENT
  Age: 63 Year
  Sex: Female

DRUGS (1)
  1. ACTIMMUNE [Suspect]
     Active Substance: INTERFERON GAMMA-1B
     Indication: CHRONIC GRANULOMATOUS DISEASE
     Dosage: 100MCG (0.5ML) AND INJECT UNDER THE SKIN THREE TIMES WEEKLY
     Route: 058

REACTIONS (6)
  - Toothache [Unknown]
  - Incorrect dose administered [Unknown]
  - Contusion [Unknown]
  - Weight decreased [Unknown]
  - Lymphadenopathy [Unknown]
  - Alopecia [Unknown]
